FAERS Safety Report 21106818 (Version 1)
Quarter: 2022Q3

REPORT INFORMATION
  Report Type: Report from Study
  Country: US (occurrence: US)
  Receive Date: 20220720
  Receipt Date: 20220720
  Transmission Date: 20221026
  Serious: Yes (Life-Threatening, Hospitalization, Other)
  Sender: FDA-Public Use
  Company Number: US-NOVARTISPH-NVSC2022US161539

PATIENT
  Age: 16 Year
  Sex: Male

DRUGS (2)
  1. TOPOTECAN [Suspect]
     Active Substance: TOPOTECAN HYDROCHLORIDE
     Indication: Ewing^s sarcoma
     Dosage: 1.3 MG
     Route: 042
     Dates: start: 20211129, end: 20220423
  2. CYCLOPHOSPHAMIDE [Suspect]
     Active Substance: CYCLOPHOSPHAMIDE
     Indication: Ewing^s sarcoma
     Dosage: 420 MG
     Route: 042
     Dates: start: 20211129, end: 20220423

REACTIONS (37)
  - Delirium [Unknown]
  - Pulmonary oedema [Recovered/Resolved]
  - Venoocclusive disease [Recovered/Resolved]
  - Hyponatraemia [Recovered/Resolved with Sequelae]
  - Cellulitis [Recovered/Resolved]
  - Seizure [Recovered/Resolved]
  - Sepsis [Recovered/Resolved]
  - Arthritis infective [Unknown]
  - Mental impairment [Unknown]
  - Pancytopenia [Unknown]
  - Neutropenia [Unknown]
  - Septic shock [Unknown]
  - Acute kidney injury [Recovering/Resolving]
  - Thrombocytopenia [Unknown]
  - Respiratory distress [Unknown]
  - Hyperbilirubinaemia [Unknown]
  - Inappropriate antidiuretic hormone secretion [Unknown]
  - Pain in extremity [Unknown]
  - Erythema [Unknown]
  - Lymphadenitis [Unknown]
  - Gastritis [Unknown]
  - Sleep disorder [Unknown]
  - Disorientation [Unknown]
  - Tachycardia [Recovering/Resolving]
  - Tachypnoea [Unknown]
  - Hypotension [Unknown]
  - Hypervolaemia [Unknown]
  - Hypoalbuminaemia [Unknown]
  - Oedema [Unknown]
  - Weight increased [Unknown]
  - Confusional state [Unknown]
  - Fall [Unknown]
  - Headache [Unknown]
  - Pyrexia [Unknown]
  - Abdominal pain upper [Unknown]
  - Vomiting [Unknown]
  - Product use in unapproved indication [Unknown]

NARRATIVE: CASE EVENT DATE: 20211129
